FAERS Safety Report 11713374 (Version 2)
Quarter: 2015Q4

REPORT INFORMATION
  Report Type: Spontaneous
  Country: IT (occurrence: IT)
  Receive Date: 20151109
  Receipt Date: 20151120
  Transmission Date: 20160304
  Serious: Yes (Hospitalization)
  Sender: FDA-Public Use
  Company Number: IT-ACCORD-035063

PATIENT
  Age: 68 Year
  Sex: Male

DRUGS (4)
  1. LEDERFOLIN [Suspect]
     Active Substance: LEUCOVORIN CALCIUM
     Indication: PANCREATIC CARCINOMA
     Dosage: 1 DF CYCLICAL??STRENGTH: 175 MG
     Route: 042
     Dates: start: 20151012, end: 20151012
  2. OXALIPLATIN ACCORD [Suspect]
     Active Substance: OXALIPLATIN
     Indication: PANCREATIC CARCINOMA
     Dosage: 170 MG CYCLICAL
     Route: 042
     Dates: start: 20151012, end: 20151012
  3. CAMPTO [Suspect]
     Active Substance: IRINOTECAN
     Indication: PANCREATIC CARCINOMA
     Dosage: 270 MG CYCLICAL??STRENGTH: 20 MG/ML
     Route: 042
     Dates: start: 20151012, end: 20151012
  4. FLUOROURACIL. [Suspect]
     Active Substance: FLUOROURACIL
     Indication: PANCREATIC CARCINOMA
     Dosage: 4800 MG IN PUMP FOR 46 HR?SODIUM CHLORIDE BAXTER(BATCH NUMBER: 150918J1101, EXPIRE DATE: 27-NOV-201
     Route: 041
     Dates: start: 20151012, end: 20151013

REACTIONS (5)
  - Pyrexia [Recovered/Resolved]
  - Off label use [Unknown]
  - Neutropenia [Recovered/Resolved]
  - Haemorrhoids [Recovered/Resolved]
  - Abdominal pain [Recovered/Resolved]

NARRATIVE: CASE EVENT DATE: 20151020
